FAERS Safety Report 18231258 (Version 3)
Quarter: 2020Q4

REPORT INFORMATION
  Report Type: Spontaneous
  Country: JP (occurrence: JP)
  Receive Date: 20200904
  Receipt Date: 20201229
  Transmission Date: 20210113
  Serious: Yes (Hospitalization)
  Sender: FDA-Public Use
  Company Number: JP-ABBVIE-20K-087-3535191-00

PATIENT
  Age: 76 Year
  Sex: Female

DRUGS (2)
  1. DUODOPA [Suspect]
     Active Substance: CARBIDOPA\LEVODOPA
     Indication: PARKINSON^S DISEASE
     Route: 050
     Dates: start: 20190319, end: 2019
  2. DUODOPA [Suspect]
     Active Substance: CARBIDOPA\LEVODOPA
     Dosage: CD: 3.5 ML/HR
     Route: 050
     Dates: start: 201909

REACTIONS (8)
  - Fat tissue decreased [Unknown]
  - Dyskinesia [Unknown]
  - Malaise [Unknown]
  - Feeding disorder [Unknown]
  - Therapeutic product effect incomplete [Unknown]
  - Fracture [Recovering/Resolving]
  - Visual impairment [Unknown]
  - Arthralgia [Unknown]

NARRATIVE: CASE EVENT DATE: 2019
